FAERS Safety Report 5076967-8 (Version None)
Quarter: 2006Q3

REPORT INFORMATION
  Report Type: 
  Country: None (occurrence: None)
  Receive Date: 20060810
  Receipt Date: 20060418
  Transmission Date: 20061208
  Serious: Yes (Life-Threatening, Other)
  Sender: FDA-Public Use
  Company Number: US-GLAXOSMITHKLINE-B0420982A

PATIENT
  Age: 36 Year
  Sex: Female

DRUGS (2)
  1. PAXIL [Suspect]
     Indication: ANXIETY
     Route: 048
  2. CLARITHROMYCIN [Suspect]
     Dosage: 500MG TWICE PER DAY
     Route: 065

REACTIONS (5)
  - AKATHISIA [None]
  - CLONUS [None]
  - DRUG INTERACTION [None]
  - PYREXIA [None]
  - SEROTONIN SYNDROME [None]
